FAERS Safety Report 15164885 (Version 1)
Quarter: 2018Q3

REPORT INFORMATION
  Report Type: Spontaneous
  Country: US (occurrence: US)
  Receive Date: 20180621
  Receipt Date: 20180621
  Transmission Date: 20181010
  Serious: No
  Sender: FDA-Public Use
  Company Number: None

PATIENT
  Age: 47 Year
  Sex: Female

DRUGS (2)
  1. SPIRONOLACTONE. [Concomitant]
     Active Substance: SPIRONOLACTONE
  2. AFINITOR [Suspect]
     Active Substance: EVEROLIMUS

REACTIONS (4)
  - Renal impairment [None]
  - Peripheral swelling [None]
  - Joint swelling [None]
  - Protein urine present [None]

NARRATIVE: CASE EVENT DATE: 20180621
